FAERS Safety Report 8415038-7 (Version None)
Quarter: 2012Q2

REPORT INFORMATION
  Report Type: 
  Country: None (occurrence: None)
  Receive Date: 20120606
  Receipt Date: 20120525
  Transmission Date: 20120825
  Serious: Yes (Other)
  Sender: FDA-Public Use
  Company Number: IT-JNJFOC-20120521128

PATIENT
  Age: 35 Year
  Sex: Female

DRUGS (1)
  1. INFLIXIMAB, RECOMBINANT [Suspect]
     Indication: SPONDYLITIS
     Route: 042
     Dates: start: 20081111, end: 20090326

REACTIONS (3)
  - OROPHARYNGEAL PAIN [None]
  - TONSILLAR DISORDER [None]
  - TONSILLAR INFLAMMATION [None]
